FAERS Safety Report 10626345 (Version 2)
Quarter: 2014Q4

REPORT INFORMATION
  Report Type: Spontaneous
  Country: US (occurrence: US)
  Receive Date: 20141204
  Receipt Date: 20141204
  Transmission Date: 20150529
  Serious: Yes (Death, Hospitalization, Other)
  Sender: FDA-Public Use
  Company Number: US-TEVA-510869USA

PATIENT
  Age: 57 Year
  Sex: Female

DRUGS (1)
  1. COPAXONE [Suspect]
     Active Substance: GLATIRAMER ACETATE
     Indication: MULTIPLE SCLEROSIS
     Dates: start: 20140403, end: 20140621

REACTIONS (5)
  - Urinary tract infection [Fatal]
  - Pneumonia [Unknown]
  - Sepsis [Unknown]
  - Cystitis [Unknown]
  - Sepsis [Fatal]

NARRATIVE: CASE EVENT DATE: 201406
